FAERS Safety Report 22277236 (Version 1)
Quarter: 2023Q2

REPORT INFORMATION
  Report Type: Spontaneous
  Country: CA (occurrence: CA)
  Receive Date: 20230503
  Receipt Date: 20230503
  Transmission Date: 20230722
  Serious: Yes (Death, Other)
  Sender: FDA-Public Use
  Company Number: CA-AUROBINDO-AUR-APL-2023-032938

PATIENT
  Age: 43 Year
  Sex: Male

DRUGS (5)
  1. VALGANCICLOVIR HYDROCHLORIDE [Suspect]
     Active Substance: VALGANCICLOVIR HYDROCHLORIDE
     Indication: Cytomegalovirus infection reactivation
     Dosage: UNK
     Route: 065
  2. GANCICLOVIR [Suspect]
     Active Substance: GANCICLOVIR
     Indication: Encephalitis cytomegalovirus
     Dosage: 7.5 MILLIGRAM/KILOGRAM, TWO TIMES A DAY
     Route: 042
  3. GANCICLOVIR [Suspect]
     Active Substance: GANCICLOVIR
     Dosage: 5.0 MILLIGRAM/KILOGRAM, TWO TIMES A DAY
     Route: 042
  4. RITUXIMAB [Suspect]
     Active Substance: RITUXIMAB
     Indication: Epstein-Barr virus infection
     Dosage: UNK
     Route: 065
  5. FOSCARNET SODIUM [Concomitant]
     Active Substance: FOSCARNET SODIUM
     Indication: Product used for unknown indication
     Dosage: 18 MILLIGRAM/KILOGRAM
     Route: 065

REACTIONS (7)
  - Cytomegalovirus infection reactivation [Fatal]
  - Acute kidney injury [Fatal]
  - BK virus infection [Fatal]
  - Encephalitis cytomegalovirus [Fatal]
  - Myelosuppression [Fatal]
  - Drug ineffective [Fatal]
  - Off label use [Fatal]
